FAERS Safety Report 22229024 (Version 1)
Quarter: 2023Q2

REPORT INFORMATION
  Report Type: Spontaneous
  Country: US (occurrence: US)
  Receive Date: 20230419
  Receipt Date: 20230419
  Transmission Date: 20230721
  Serious: No
  Sender: FDA-Public Use
  Company Number: US-SCILEX PHARMACEUTICALS INC.-2023SCX00003

PATIENT
  Sex: Female

DRUGS (3)
  1. ZTLIDO [Suspect]
     Active Substance: LIDOCAINE
     Indication: Neuropathy peripheral
     Route: 061
  2. ZTLIDO [Suspect]
     Active Substance: LIDOCAINE
     Indication: Pain
  3. LIDOCAINE [Suspect]
     Active Substance: LIDOCAINE
     Indication: Pain

REACTIONS (4)
  - Peripheral swelling [Unknown]
  - Therapeutic product effect incomplete [Recovered/Resolved]
  - Pain in extremity [Unknown]
  - Product adhesion issue [Unknown]
